FAERS Safety Report 11713917 (Version 2)
Quarter: 2015Q4

REPORT INFORMATION
  Report Type: Spontaneous
  Country: CH (occurrence: CH)
  Receive Date: 20151109
  Receipt Date: 20151116
  Transmission Date: 20160304
  Serious: No
  Sender: FDA-Public Use
  Company Number: CH-JNJFOC-20151102840

PATIENT

DRUGS (2)
  1. REMICADE [Suspect]
     Active Substance: INFLIXIMAB
     Indication: FAMILIAL MEDITERRANEAN FEVER
     Route: 042
  2. REMICADE [Suspect]
     Active Substance: INFLIXIMAB
     Indication: SPONDYLITIS
     Route: 042

REACTIONS (4)
  - Product use issue [Unknown]
  - Drug ineffective [Unknown]
  - Pustular psoriasis [Unknown]
  - Acne [Unknown]
